FAERS Safety Report 8488477-6 (Version None)
Quarter: 2012Q3

REPORT INFORMATION
  Report Type: 
  Country: None (occurrence: None)
  Receive Date: 20120705
  Receipt Date: 20120622
  Transmission Date: 20120928
  Serious: Yes (Other)
  Sender: FDA-Public Use
  Company Number: CA-JNJFOC-20120612019

PATIENT
  Sex: Female
  Weight: 48 kg

DRUGS (7)
  1. BENADRYL [Concomitant]
     Route: 042
  2. CIPROFLOXACIN HCL [Concomitant]
     Dosage: STANDING DOSE
     Route: 065
  3. ACETAMINOPHEN [Concomitant]
     Route: 048
  4. REMICADE [Suspect]
     Route: 042
     Dates: start: 20111201
  5. REMICADE [Suspect]
     Indication: CROHN'S DISEASE
     Dosage: SIXTH INFUSION
     Route: 042
     Dates: start: 20120622, end: 20120622
  6. FLAGYL [Concomitant]
     Dosage: STANDING DOSE
     Route: 065
  7. HYDROCORTISONE [Concomitant]
     Indication: PREMEDICATION
     Route: 042

REACTIONS (8)
  - INFUSION RELATED REACTION [None]
  - FLUSHING [None]
  - ARTHRALGIA [None]
  - CHEST DISCOMFORT [None]
  - JOINT RANGE OF MOTION DECREASED [None]
  - MUSCULOSKELETAL STIFFNESS [None]
  - FEELING HOT [None]
  - JOINT SWELLING [None]
